FAERS Safety Report 22107709 (Version 1)
Quarter: 2023Q1

REPORT INFORMATION
  Report Type: Spontaneous
  Country: CN (occurrence: CN)
  Receive Date: 20230317
  Receipt Date: 20230317
  Transmission Date: 20230418
  Serious: Yes (Death, Other)
  Sender: FDA-Public Use
  Company Number: CN-AMGEN-CHNSP2023043510

PATIENT

DRUGS (4)
  1. PEGFILGRASTIM [Suspect]
     Active Substance: PEGFILGRASTIM
     Indication: Prophylaxis
     Dosage: 6 MILLIGRAM
     Route: 058
  2. RITUXIMAB [Concomitant]
     Active Substance: RITUXIMAB
     Dosage: 375 MILLIGRAM/SQ. METER, ON DAY 1 FROM CYCLE 1 TO 6
     Route: 042
  3. IBRUTINIB [Concomitant]
     Active Substance: IBRUTINIB
     Dosage: 560 MILLIGRAM, Q3WK, EACH 21-DAY TREATMENT CYCLE FROM CYCLE 1 TO 6
     Route: 048
  4. LENALIDOMIDE [Concomitant]
     Active Substance: LENALIDOMIDE
     Dosage: 25 MILLIGRAM, DAILY FROM DAY 1 TO 10 FROM CYCLE 1 TO 6
     Route: 048

REACTIONS (22)
  - Diffuse large B-cell lymphoma [Fatal]
  - Pneumonia [Unknown]
  - Neutropenia [Unknown]
  - Anaemia [Unknown]
  - Myelosuppression [Unknown]
  - Pneumonia [Unknown]
  - Blood bilirubin increased [Unknown]
  - Gastrointestinal haemorrhage [Unknown]
  - Gamma-glutamyltransferase increased [Unknown]
  - Hepatitis B reactivation [Unknown]
  - Musculoskeletal toxicity [Unknown]
  - Fatigue [Unknown]
  - Atrial fibrillation [Unknown]
  - Alanine aminotransferase increased [Unknown]
  - Aspartate aminotransferase increased [Unknown]
  - Hyperuricaemia [Unknown]
  - Thrombocytopenia [Unknown]
  - Anaphylactic reaction [Unknown]
  - Haematuria [Unknown]
  - Blood creatinine increased [Unknown]
  - Purpura [Unknown]
  - Rash [Unknown]
